FAERS Safety Report 9932222 (Version 2)
Quarter: 2014Q1

REPORT INFORMATION
  Report Type: Spontaneous
  Country: US (occurrence: US)
  Receive Date: 20140228
  Receipt Date: 20140228
  Transmission Date: 20141002
  Serious: Yes (Other)
  Sender: FDA-Public Use
  Company Number: US-ABBVIE-13P-163-1160674-00

PATIENT
  Age: 53 Year
  Sex: Male
  Weight: 83.99 kg

DRUGS (2)
  1. ANDROGEL [Suspect]
     Indication: BLOOD TESTOSTERONE DECREASED
     Dates: start: 2002, end: 200508
  2. UNKNOWN MEDICATION [Concomitant]
     Indication: HYPERTENSION

REACTIONS (2)
  - Prostate cancer [Recovered/Resolved]
  - Prostatic specific antigen increased [Recovered/Resolved]
